FAERS Safety Report 25268271 (Version 1)
Quarter: 2025Q2

REPORT INFORMATION
  Report Type: Spontaneous
  Country: ES (occurrence: ES)
  Receive Date: 20250505
  Receipt Date: 20250505
  Transmission Date: 20250717
  Serious: Yes (Hospitalization)
  Sender: TEVA
  Company Number: None

PATIENT
  Age: 67 Year
  Sex: Female
  Weight: 40.9 kg

DRUGS (6)
  1. ENALAPRIL [Suspect]
     Active Substance: ENALAPRIL
     Indication: Hypertension
     Dosage: ENALAPRIL (2142A)
     Route: 048
     Dates: start: 20200522, end: 20250114
  2. ENALAPRIL\HYDROCHLOROTHIAZIDE [Suspect]
     Active Substance: ENALAPRIL\HYDROCHLOROTHIAZIDE
     Indication: Hypertension
     Dosage: 1 TABLET EVERY 24 HOURS; ENALAPRIL + HYDROCHLOROTHIAZIDE
     Route: 048
     Dates: start: 20210504, end: 20250114
  3. GABAPENTIN [Concomitant]
     Active Substance: GABAPENTIN
     Indication: Pain
     Dosage: GABAPENTINA (2641A)
     Route: 048
     Dates: start: 20241029, end: 20250114
  4. SULFAMETHOXAZOLE\TRIMETHOPRIM [Concomitant]
     Active Substance: SULFAMETHOXAZOLE\TRIMETHOPRIM
     Indication: Infected skin ulcer
     Dosage: 1 TABLET EVERY 8 HOURS; 80 MG/400 MG, 20 TABLETS
     Route: 048
     Dates: start: 20241230, end: 20250113
  5. FUROSEMIDE [Suspect]
     Active Substance: FUROSEMIDE
     Indication: Oedema
     Dosage: 30 TABLETS
     Route: 048
     Dates: start: 20241004
  6. BRITAPEN [Concomitant]
     Indication: Ulcer
     Dosage: 16 CAPSULES
     Route: 048
     Dates: start: 20250107, end: 20250114

REACTIONS (3)
  - Acute kidney injury [Recovered/Resolved]
  - Hyponatraemia [Recovered/Resolved]
  - Hyperkalaemia [Recovered/Resolved]

NARRATIVE: CASE EVENT DATE: 20250114
